FAERS Safety Report 15418005 (Version 2)
Quarter: 2018Q4

REPORT INFORMATION
  Report Type: Spontaneous
  Country: US (occurrence: US)
  Receive Date: 20180924
  Receipt Date: 20181023
  Transmission Date: 20190204
  Serious: No
  Sender: FDA-Public Use
  Company Number: US-GLAXOSMITHKLINE-US2018168010

PATIENT
  Age: 61 Year
  Sex: Female

DRUGS (2)
  1. NICODERM CQ [Suspect]
     Active Substance: NICOTINE
     Indication: SMOKING CESSATION THERAPY
     Dosage: UNK
     Dates: start: 20180913, end: 20180913
  2. NICODERM CQ [Suspect]
     Active Substance: NICOTINE
     Dosage: UNK
     Dates: start: 20180913, end: 20180913

REACTIONS (2)
  - Product complaint [Unknown]
  - Wrong technique in product usage process [Unknown]
